FAERS Safety Report 6969522-3 (Version None)
Quarter: 2010Q3

REPORT INFORMATION
  Report Type: 
  Country: None (occurrence: None)
  Receive Date: 20100907
  Receipt Date: 20100907
  Transmission Date: 20110219
  Serious: No
  Sender: FDA-Public Use
  Company Number: None

PATIENT
  Age: 68 Year
  Sex: Female
  Weight: 68.0396 kg

DRUGS (2)
  1. LEVAQUIN [Suspect]
     Indication: DIVERTICULITIS
     Dosage: 1 PILL 1 TIME A DAY PO
     Route: 048
     Dates: start: 20100729, end: 20100807
  2. LEVAQUIN [Suspect]
     Indication: DIVERTICULITIS
     Dosage: 1 PILL 1 TIME A DAY PO
     Route: 048
     Dates: start: 20100818, end: 20100826

REACTIONS (3)
  - GAIT DISTURBANCE [None]
  - MYOSITIS [None]
  - TENDONITIS [None]
